FAERS Safety Report 20605972 (Version 1)
Quarter: 2022Q1

REPORT INFORMATION
  Report Type: Spontaneous
  Country: IT (occurrence: IT)
  Receive Date: 20220317
  Receipt Date: 20220317
  Transmission Date: 20220423
  Serious: Yes (Other)
  Sender: FDA-Public Use
  Company Number: IT-AMGEN-ITASP2022044330

PATIENT
  Age: 17 Year
  Sex: Female

DRUGS (1)
  1. ADALIMUMAB [Suspect]
     Active Substance: ADALIMUMAB
     Indication: Scleritis
     Dosage: 40 MILLIGRAM, Q2WK
     Route: 058

REACTIONS (6)
  - Retinitis [Unknown]
  - Uveitis [Unknown]
  - Scleritis [Unknown]
  - Drug effective for unapproved indication [Unknown]
  - Maculopathy [Unknown]
  - Off label use [Unknown]
